FAERS Safety Report 14471731 (Version 2)
Quarter: 2018Q1

REPORT INFORMATION
  Report Type: Spontaneous
  Country: US (occurrence: US)
  Receive Date: 20180131
  Receipt Date: 20180328
  Transmission Date: 20180509
  Serious: Yes (Other)
  Sender: FDA-Public Use
  Company Number: US-ELI_LILLY_AND_COMPANY-US201801011594

PATIENT
  Sex: Male
  Weight: 117.91 kg

DRUGS (13)
  1. HUMALOG [Concomitant]
     Active Substance: INSULIN LISPRO
     Dosage: 8 U, UNKNOWN
     Route: 058
     Dates: start: 20151112
  2. CALCIUM [Concomitant]
     Active Substance: CALCIUM
     Dosage: 60 MG, DAILY
     Route: 065
     Dates: start: 20171005
  3. POTASSIUM CHLORIDE. [Concomitant]
     Active Substance: POTASSIUM CHLORIDE
     Dosage: 20 MG, BID
     Route: 048
     Dates: start: 20160622
  4. VITAMIN E                          /00110501/ [Concomitant]
     Active Substance: TOCOPHEROL
     Dosage: 100 MG, DAILY
     Route: 048
     Dates: start: 20171005
  5. CYMBALTA [Suspect]
     Active Substance: DULOXETINE HYDROCHLORIDE
     Indication: NEURALGIA
  6. IRON [Concomitant]
     Active Substance: IRON
     Dosage: 100 MG, DAILY
     Route: 048
     Dates: start: 20170607
  7. LISINOPRIL. [Concomitant]
     Active Substance: LISINOPRIL
     Dosage: 20 MG, DAILY
     Route: 048
     Dates: start: 20170607
  8. MAGNESIUM OXIDE. [Concomitant]
     Active Substance: MAGNESIUM OXIDE
     Dosage: 500 MG, DAILY
     Route: 048
     Dates: start: 20170814
  9. CYMBALTA [Suspect]
     Active Substance: DULOXETINE HYDROCHLORIDE
     Indication: NEURALGIA
     Dosage: 60 MG, DAILY
     Route: 048
     Dates: start: 20170607, end: 20171201
  10. ATENOLOL. [Concomitant]
     Active Substance: ATENOLOL
     Dosage: 25 MG, DAILY
     Route: 065
     Dates: start: 20151216
  11. LANTUS [Concomitant]
     Active Substance: INSULIN GLARGINE
     Dosage: 60 U, DAILY
     Route: 058
     Dates: start: 20170712
  12. VITAMIN D                          /00107901/ [Concomitant]
     Active Substance: ERGOCALCIFEROL
     Dosage: 1000 MG, DAILY
     Route: 065
     Dates: start: 20170607
  13. FUROSEMIDE. [Concomitant]
     Active Substance: FUROSEMIDE
     Dosage: 20 MG, DAILY (PRN)
     Route: 048
     Dates: start: 20170726

REACTIONS (14)
  - Sleep disorder [Unknown]
  - Drug withdrawal syndrome [Unknown]
  - Off label use [Unknown]
  - Skin injury [Unknown]
  - Altered state of consciousness [Unknown]
  - Hallucinations, mixed [Recovered/Resolved]
  - Balance disorder [Unknown]
  - Coordination abnormal [Unknown]
  - Fall [Unknown]
  - Arthralgia [Unknown]
  - Suicidal ideation [Recovered/Resolved]
  - Depression [Unknown]
  - Contusion [Unknown]
  - Somnambulism [Unknown]
